FAERS Safety Report 7288187-7 (Version None)
Quarter: 2011Q1

REPORT INFORMATION
  Report Type: 
  Country: None (occurrence: None)
  Receive Date: 20110211
  Receipt Date: 20110203
  Transmission Date: 20110831
  Serious: Yes (Other)
  Sender: FDA-Public Use
  Company Number: JP-JNJFOC-20110201889

PATIENT

DRUGS (2)
  1. ADRENALINE [Interacting]
     Indication: CARDIO-RESPIRATORY ARREST
     Route: 065
  2. RISPERDAL [Suspect]
     Indication: PRODUCT USED FOR UNKNOWN INDICATION
     Route: 048

REACTIONS (3)
  - CARDIO-RESPIRATORY ARREST [None]
  - INHIBITORY DRUG INTERACTION [None]
  - DRUG INTERACTION [None]
